FAERS Safety Report 7902930-2 (Version None)
Quarter: 2011Q4

REPORT INFORMATION
  Report Type: 
  Country: None (occurrence: None)
  Receive Date: 20111109
  Receipt Date: 20111031
  Transmission Date: 20120403
  Serious: Yes (Other)
  Sender: FDA-Public Use
  Company Number: JP-JNJFOC-20110705914

PATIENT
  Age: 50 Year
  Sex: Male

DRUGS (3)
  1. TOPIRAMATE [Suspect]
     Route: 048
     Dates: start: 20090330
  2. TOPIRAMATE [Suspect]
     Indication: EPILEPSY
     Route: 048
     Dates: start: 20090126, end: 20090203
  3. TOPIRAMATE [Suspect]
     Route: 048
     Dates: start: 20090204, end: 20090329

REACTIONS (3)
  - HALLUCINATION, AUDITORY [None]
  - NEUROGENIC BLADDER [None]
  - PROSTATITIS [None]
